FAERS Safety Report 5199997-4 (Version None)
Quarter: 2007Q1

REPORT INFORMATION
  Report Type: 
  Country: None (occurrence: None)
  Receive Date: 20070103
  Receipt Date: 20061222
  Transmission Date: 20070707
  Serious: Yes (Life-Threatening, Hospitalization, Other)
  Sender: FDA-Public Use
  Company Number: 2005-06-0616

PATIENT
  Age: 45 Year
  Sex: Female

DRUGS (14)
  1. PEG-INTRON [Suspect]
     Indication: HEPATITIS C
     Dosage: 120 MCG; QW; SC
     Route: 058
     Dates: start: 20050128, end: 20050511
  2. RIBASPHERE [Suspect]
     Indication: HEPATITIS C
     Dosage: 1000 MG; QD; PO
     Route: 048
     Dates: start: 20050128, end: 20050511
  3. ALPRAZOLAM [Concomitant]
  4. LASIX [Concomitant]
  5. METOCLOPRAMIDE [Concomitant]
  6. HYDROCHLORIDE [Concomitant]
  7. NEXIUM [Concomitant]
  8. PREMARIN [Concomitant]
  9. PROPRANOLOL HYDROCHLORIDE [Concomitant]
  10. ZELNORM [Concomitant]
  11. VANCOMYCIN [Concomitant]
  12. PROTONIX [Concomitant]
  13. LEVAQUIN [Concomitant]
  14. AZTREONAM [Concomitant]

REACTIONS (8)
  - ALANINE AMINOTRANSFERASE INCREASED [None]
  - ANAEMIA [None]
  - BONE MARROW FAILURE [None]
  - HAEMOLYSIS [None]
  - PNEUMONIA [None]
  - RESPIRATORY DISTRESS [None]
  - SEPSIS [None]
  - VOCAL CORD PARALYSIS [None]
